FAERS Safety Report 9207838 (Version 1)
Quarter: 2013Q2

REPORT INFORMATION
  Report Type: Report from Study
  Country: US (occurrence: US)
  Receive Date: 20130403
  Receipt Date: 20130403
  Transmission Date: 20140414
  Serious: Yes (Hospitalization)
  Sender: FDA-Public Use
  Company Number: US-US-EMD SERONO, INC.-7202408

PATIENT
  Sex: Female

DRUGS (1)
  1. REBIF [Suspect]
     Indication: MULTIPLE SCLEROSIS
     Route: 058
     Dates: start: 20090226

REACTIONS (4)
  - Intervertebral disc compression [Recovering/Resolving]
  - Intervertebral disc protrusion [Recovering/Resolving]
  - Back injury [Recovering/Resolving]
  - Fatigue [Unknown]
